FAERS Safety Report 15822949 (Version 1)
Quarter: 2019Q1

REPORT INFORMATION
  Report Type: Report from Study
  Country: US (occurrence: US)
  Receive Date: 20190114
  Receipt Date: 20190114
  Transmission Date: 20190417
  Serious: Yes (Other)
  Sender: FDA-Public Use
  Company Number: US-SA-2018SA333695

PATIENT
  Age: 66 Year
  Sex: Male

DRUGS (1)
  1. INSULIN GLARGINE [Suspect]
     Active Substance: INSULIN GLARGINE
     Indication: BLOOD GLUCOSE INCREASED
     Dosage: 40 U, QD
     Route: 058

REACTIONS (5)
  - Speech disorder [Not Recovered/Not Resolved]
  - Labyrinthitis [Recovered/Resolved]
  - Product dose omission [Unknown]
  - Feeding disorder [Not Recovered/Not Resolved]
  - Facial paralysis [Not Recovered/Not Resolved]
